FAERS Safety Report 6896999-4 (Version None)
Quarter: 2010Q3

REPORT INFORMATION
  Report Type: 
  Country: None (occurrence: None)
  Receive Date: 20100729
  Receipt Date: 20100725
  Transmission Date: 20110219
  Serious: Yes (Hospitalization)
  Sender: FDA-Public Use
  Company Number: RB-13432-2010

PATIENT
  Sex: Male
  Weight: 98 kg

DRUGS (2)
  1. SUBUTEX [Suspect]
     Indication: DRUG DEPENDENCE
     Dosage: 12 MG SUBLINGUAL, 12 MG SUBLINGUAL
     Route: 060
     Dates: start: 20060101, end: 20100629
  2. SUBUTEX [Suspect]
     Indication: DRUG DEPENDENCE
     Dosage: 12 MG SUBLINGUAL, 12 MG SUBLINGUAL
     Route: 060
     Dates: start: 20100630, end: 20100720

REACTIONS (1)
  - PANCREATITIS ACUTE [None]
